FAERS Safety Report 4351166-3 (Version None)
Quarter: 2004Q2

REPORT INFORMATION
  Report Type: 
  Country: None (occurrence: None)
  Receive Date: 20040428
  Receipt Date: 20040105
  Transmission Date: 20050107
  Serious: Yes (Death)
  Sender: FDA-Public Use
  Company Number: US-JNJFOC-20040100721

PATIENT
  Age: 91 Year
  Sex: Female

DRUGS (7)
  1. ULTRAM [Suspect]
     Indication: BACK PAIN
     Dosage: 25 MG, 1 IN 4 HOUR, ORAL
     Route: 048
     Dates: start: 20030604
  2. COUMADIN [Concomitant]
  3. EFFEXOR [Concomitant]
  4. MINITRAN (GLYCERYL TRINITRATE) [Concomitant]
  5. NORVASC [Concomitant]
  6. TOPROL (METOPROLOL SUCCINATE) [Concomitant]
  7. VENTILAN (SALBUTAMOL) [Concomitant]

REACTIONS (1)
  - DEATH [None]
